FAERS Safety Report 12241195 (Version 1)
Quarter: 2016Q2

REPORT INFORMATION
  Report Type: Spontaneous
  Country: DE (occurrence: DE)
  Receive Date: 20160406
  Receipt Date: 20160406
  Transmission Date: 20160815
  Serious: Yes (Other)
  Sender: FDA-Public Use
  Company Number: GXKR2016DE001753

PATIENT
  Age: 48 Year
  Sex: Male

DRUGS (1)
  1. AMLODIPIN 1A PHARMA N [Suspect]
     Active Substance: AMLODIPINE BESYLATE
     Indication: HYPERTENSION
     Dosage: 7.5 MG, QD
     Route: 048

REACTIONS (2)
  - Conjunctival haemorrhage [Unknown]
  - Diplopia [Unknown]
